FAERS Safety Report 4711052-3 (Version None)
Quarter: 2005Q3

REPORT INFORMATION
  Report Type: 
  Country: None (occurrence: None)
  Receive Date: 20050708
  Receipt Date: 20050628
  Transmission Date: 20060218
  Serious: Yes (Hospitalization, Other)
  Sender: FDA-Public Use
  Company Number: 2005077977

PATIENT
  Age: 63 Year
  Sex: Male

DRUGS (6)
  1. ATORVASTATIN CALCIUM [Suspect]
     Indication: BLOOD CHOLESTEROL INCREASED
     Dosage: 40 MG (40 MG, 1 IN 1 D), ORAL
     Route: 048
     Dates: start: 20050225
  2. COFFEE (CAFFEINE) [Suspect]
     Indication: ILL-DEFINED DISORDER
     Dosage: ORAL
     Route: 048
  3. RANITIDINE HYDROCHLORIDE [Concomitant]
  4. ATENOLOL [Concomitant]
  5. NORVASC [Concomitant]
  6. ALTACE [Concomitant]

REACTIONS (2)
  - GASTRIC DISORDER [None]
  - TRIPLE VESSEL BYPASS GRAFT [None]
